FAERS Safety Report 24316745 (Version 1)
Quarter: 2024Q3

REPORT INFORMATION
  Report Type: Spontaneous
  Country: TR (occurrence: None)
  Receive Date: 20240913
  Receipt Date: 20240913
  Transmission Date: 20241016
  Serious: Yes (Hospitalization, Other)
  Sender: UNICHEM
  Company Number: TR-Unichem Pharmaceuticals (USA) Inc-UCM202409-001147

PATIENT

DRUGS (2)
  1. ARIPIPRAZOLE [Suspect]
     Active Substance: ARIPIPRAZOLE
     Indication: Affective disorder
     Dosage: UNKNOWN
  2. METHYLPREDNISOLONE [Concomitant]
     Active Substance: METHYLPREDNISOLONE
     Indication: Product used for unknown indication
     Dosage: UNKNOWN

REACTIONS (7)
  - Pancytopenia [Unknown]
  - Altered state of consciousness [Unknown]
  - Night sweats [Unknown]
  - Asthenia [Unknown]
  - Weight decreased [Unknown]
  - Dyspnoea [Unknown]
  - Product use in unapproved indication [Unknown]
